FAERS Safety Report 7203508-9 (Version None)
Quarter: 2010Q4

REPORT INFORMATION
  Report Type: 
  Country: None (occurrence: None)
  Receive Date: 20101230
  Receipt Date: 20101222
  Transmission Date: 20110411
  Serious: Yes (Life-Threatening, Disabling)
  Sender: FDA-Public Use
  Company Number: JP-BRISTOL-MYERS SQUIBB COMPANY-15460330

PATIENT
  Age: 62 Year
  Sex: Male
  Weight: 60 kg

DRUGS (10)
  1. MAXIPIME [Suspect]
     Indication: PNEUMONIA
     Route: 042
     Dates: start: 20101214, end: 20101214
  2. OXYCONTIN [Concomitant]
  3. OXINORM [Concomitant]
  4. LOXONIN [Concomitant]
  5. MAGMITT [Concomitant]
  6. TAKEPRON [Concomitant]
  7. BLOPRESS [Concomitant]
  8. ZYLORIC [Concomitant]
  9. PANVITAN [Concomitant]
  10. LYRICA [Concomitant]

REACTIONS (3)
  - ANAPHYLACTIC SHOCK [None]
  - APALLIC SYNDROME [None]
  - CARDIO-RESPIRATORY ARREST [None]
